FAERS Safety Report 8432845-5 (Version None)
Quarter: 2012Q2

REPORT INFORMATION
  Report Type: 
  Country: None (occurrence: None)
  Receive Date: 20120323
  Receipt Date: 20110711
  Transmission Date: 20120825
  Serious: Yes (Hospitalization)
  Sender: FDA-Public Use
  Company Number: 163-21880-11071245

PATIENT
  Age: 57 Year
  Sex: Male

DRUGS (2)
  1. LENALIDOMIDE [Suspect]
     Indication: MULTIPLE MYELOMA
     Dosage: 15MG DAILY DAYS1-20; 5MG, 15MG DAILY DAYS1-28, PO, 5 MG, 1 IN 1 D, PO
     Route: 048
     Dates: start: 20081201
  2. VELCADE [Concomitant]

REACTIONS (1)
  - PYREXIA [None]
